FAERS Safety Report 4480653-2 (Version None)
Quarter: 2004Q4

REPORT INFORMATION
  Report Type: 
  Country: None (occurrence: None)
  Receive Date: 20041019
  Receipt Date: 20040929
  Transmission Date: 20050328
  Serious: Yes (Hospitalization)
  Sender: FDA-Public Use
  Company Number: 8987

PATIENT
  Age: 68 Year
  Sex: Female

DRUGS (4)
  1. METHOTREXATE [Suspect]
     Dosage: 15 MG WEEKLY  SC
     Route: 058
     Dates: start: 19970101
  2. ETANERCEPT [Suspect]
     Dosage: SC
     Route: 058
     Dates: start: 20011001
  3. PREDNISOLONE [Suspect]
     Dosage: 5 MG  PO
     Route: 048
  4. DICLOFENAC [Concomitant]

REACTIONS (3)
  - BURSITIS INFECTIVE [None]
  - POST PROCEDURAL COMPLICATION [None]
  - WOUND INFECTION [None]
